FAERS Safety Report 4489069-6 (Version None)
Quarter: 2004Q4

REPORT INFORMATION
  Report Type: 
  Country: None (occurrence: None)
  Receive Date: 20041029
  Receipt Date: 20041006
  Transmission Date: 20050328
  Serious: Yes (Hospitalization)
  Sender: FDA-Public Use
  Company Number: AU-MERCK-0410AUS00093

PATIENT
  Age: 48 Year
  Sex: Male

DRUGS (2)
  1. VIOXX [Suspect]
     Indication: BACK PAIN
     Route: 048
     Dates: start: 20000101, end: 20030301
  2. [THERAPY UNSPECIFIED] [Concomitant]
     Route: 065
     Dates: start: 20030501

REACTIONS (5)
  - CARDIAC DISORDER [None]
  - EXTRASYSTOLES [None]
  - HAEMATEMESIS [None]
  - MYOCARDIAL INFARCTION [None]
  - OVERDOSE [None]
